FAERS Safety Report 14209493 (Version 1)
Quarter: 2017Q4

REPORT INFORMATION
  Report Type: Spontaneous
  Country: US (occurrence: US)
  Receive Date: 20171121
  Receipt Date: 20171121
  Transmission Date: 20180321
  Serious: No
  Sender: FDA-Public Use
  Company Number: US-JNJFOC-20171001347

PATIENT
  Age: 69 Year
  Sex: Male

DRUGS (8)
  1. FLORANEX [Concomitant]
     Active Substance: LACTOBACILLUS ACIDOPHILUS\LACTOBACILLUS DELBRUECKII SUBSP. BULGARICUS
     Route: 065
     Dates: start: 2017
  2. MIRALAX [Concomitant]
     Active Substance: POLYETHYLENE GLYCOL 3350
     Route: 065
  3. XARELTO [Suspect]
     Active Substance: RIVAROXABAN
     Indication: DEEP VEIN THROMBOSIS
     Route: 048
     Dates: start: 20170913, end: 20170927
  4. THIAMINE. [Concomitant]
     Active Substance: THIAMINE
     Route: 065
     Dates: start: 2017
  5. ARICEPT [Concomitant]
     Active Substance: DONEPEZIL HYDROCHLORIDE
     Route: 065
     Dates: start: 2017
  6. XARELTO [Suspect]
     Active Substance: RIVAROXABAN
     Indication: DEEP VEIN THROMBOSIS
     Route: 048
     Dates: start: 20170928
  7. LOTRIMIN [Concomitant]
     Active Substance: CLOTRIMAZOLE
     Route: 061
     Dates: start: 2017
  8. EXELON [Concomitant]
     Active Substance: RIVASTIGMINE TARTRATE
     Route: 061
     Dates: start: 2017

REACTIONS (4)
  - Peripheral swelling [Unknown]
  - Off label use [Unknown]
  - Pain in extremity [Unknown]
  - Inappropriate schedule of drug administration [Unknown]

NARRATIVE: CASE EVENT DATE: 20170913
